FAERS Safety Report 7959055-X (Version None)
Quarter: 2011Q4

REPORT INFORMATION
  Report Type: 
  Country: None (occurrence: None)
  Receive Date: 20111206
  Receipt Date: 20110825
  Transmission Date: 20120403
  Serious: No
  Sender: FDA-Public Use
  Company Number: US-GLAXOSMITHKLINE-A0942291A

PATIENT
  Sex: Female

DRUGS (1)
  1. LAMICTAL [Suspect]
     Indication: DEPRESSION
     Route: 048
     Dates: end: 20110818

REACTIONS (4)
  - OROPHARYNGEAL PAIN [None]
  - PARAESTHESIA [None]
  - RASH [None]
  - LYMPHADENOPATHY [None]
